FAERS Safety Report 19567342 (Version 4)
Quarter: 2021Q3

REPORT INFORMATION
  Report Type: Spontaneous
  Country: US (occurrence: US)
  Receive Date: 20210714
  Receipt Date: 20210811
  Transmission Date: 20211014
  Serious: Yes (Other)
  Sender: FDA-Public Use
  Company Number: US-ALXN-A202107912

PATIENT
  Sex: Female

DRUGS (1)
  1. SOLIRIS [Suspect]
     Active Substance: ECULIZUMAB
     Indication: MYASTHENIA GRAVIS
     Dosage: UNK, Q2W (EVERY TWO WEEKS)
     Route: 042

REACTIONS (23)
  - Myasthenia gravis [Unknown]
  - Inflammation [Unknown]
  - Fungal infection [Unknown]
  - Pneumonia fungal [Unknown]
  - Renal failure [Unknown]
  - Bacterial infection [Unknown]
  - Pain [Unknown]
  - Arthropod bite [Unknown]
  - Hypersomnia [Unknown]
  - Lip swelling [Unknown]
  - Nausea [Unknown]
  - Decreased immune responsiveness [Unknown]
  - Tongue discolouration [Unknown]
  - Skin fissures [Unknown]
  - Eye swelling [Unknown]
  - Cough [Unknown]
  - Rash [Unknown]
  - Blister [Unknown]
  - Malaise [Unknown]
  - Lip exfoliation [Unknown]
  - Eye irritation [Unknown]
  - Oropharyngeal pain [Unknown]
  - Infection [Unknown]

NARRATIVE: CASE EVENT DATE: 2021
